FAERS Safety Report 17962409 (Version 1)
Quarter: 2020Q2

REPORT INFORMATION
  Report Type: Spontaneous
  Country: US (occurrence: US)
  Receive Date: 20200630
  Receipt Date: 20200630
  Transmission Date: 20200714
  Serious: No
  Sender: FDA-Public Use
  Company Number: US-SA-2020SA163403

PATIENT

DRUGS (1)
  1. DUPIXENT [Suspect]
     Active Substance: DUPILUMAB
     Indication: ECZEMA
     Dosage: 600 MG, 1X
     Dates: start: 20200614, end: 20200614

REACTIONS (5)
  - Feeling hot [Unknown]
  - Pruritus [Unknown]
  - Erythema [Unknown]
  - Urticaria [Unknown]
  - Rash pruritic [Unknown]

NARRATIVE: CASE EVENT DATE: 202006
